FAERS Safety Report 6617361-5 (Version None)
Quarter: 2010Q1

REPORT INFORMATION
  Report Type: 
  Country: None (occurrence: None)
  Receive Date: 20100307
  Receipt Date: 20091210
  Transmission Date: 20100710
  Serious: No
  Sender: FDA-Public Use
  Company Number: JP-BAYER-200942058GPV

PATIENT
  Age: 65 Year
  Sex: Male

DRUGS (3)
  1. SORAFENIB [Suspect]
     Indication: RENAL CELL CARCINOMA
  2. SORAFENIB [Suspect]
  3. ERGONOVINE [Concomitant]
     Indication: CHEST PAIN
     Route: 013

REACTIONS (5)
  - ACUTE CORONARY SYNDROME [None]
  - ACUTE MYOCARDIAL INFARCTION [None]
  - HYPERTENSION [None]
  - MYOCARDIAL OEDEMA [None]
  - PRINZMETAL ANGINA [None]
